FAERS Safety Report 5590860-3 (Version None)
Quarter: 2007Q4

REPORT INFORMATION
  Report Type: 
  Country: None (occurrence: None)
  Receive Date: 20071214
  Receipt Date: 20061026
  Transmission Date: 20080405
  Serious: Yes (Other)
  Sender: FDA-Public Use
  Company Number: S06-USA-04501-01

PATIENT
  Age: 74 Year
  Sex: Female

DRUGS (8)
  1. NAMENDA [Suspect]
     Indication: DEMENTIA
     Dosage: 5 MG QD PO
     Route: 048
     Dates: start: 20060930, end: 20061003
  2. PROGESTERONE CREAM [Concomitant]
  3. ARICEPT [Concomitant]
  4. CYMBALTA [Concomitant]
  5. GABITRIL [Concomitant]
  6. WELLBUTRIN (BUPPROPION HYDROCHLORIDE) [Concomitant]
  7. PREVACID [Concomitant]
  8. XANAX [Concomitant]

REACTIONS (2)
  - HALLUCINATION, AUDITORY [None]
  - SUICIDAL IDEATION [None]
